FAERS Safety Report 20124749 (Version 1)
Quarter: 2021Q4

REPORT INFORMATION
  Report Type: Spontaneous
  Country: US (occurrence: None)
  Receive Date: 20211126
  Receipt Date: 20211126
  Transmission Date: 20220303
  Serious: No
  Sender: FDA-Public Use
  Company Number: None

PATIENT
  Age: 64 Year
  Sex: Male
  Weight: 92 kg

DRUGS (1)
  1. OLUMIANT [Suspect]
     Active Substance: BARICITINIB
     Indication: Upper respiratory tract infection
     Dosage: FREQUENCY : DAILY;?
     Route: 048
     Dates: start: 20210918, end: 20210927

REACTIONS (3)
  - Lymphopenia [None]
  - Therapy interrupted [None]
  - Refusal of treatment by patient [None]

NARRATIVE: CASE EVENT DATE: 20210924
